FAERS Safety Report 20696850 (Version 1)
Quarter: 2022Q2

REPORT INFORMATION
  Report Type: Spontaneous
  Country: US (occurrence: US)
  Receive Date: 20220411
  Receipt Date: 20220411
  Transmission Date: 20220721
  Serious: No
  Sender: FDA-Public Use
  Company Number: US-Osmotica_Pharmaceutical_US_LLC-POI0573201900283

PATIENT
  Age: 61 Year
  Sex: Male

DRUGS (2)
  1. OSMOLEX ER [Suspect]
     Active Substance: AMANTADINE
     Indication: Parkinson^s disease
     Dates: start: 201911, end: 202008
  2. OSMOLEX ER [Suspect]
     Active Substance: AMANTADINE
     Dosage: ONE 129 MG AND ONE 193 MG TABLETS
     Dates: start: 202107

REACTIONS (3)
  - Parkinson^s disease [Not Recovered/Not Resolved]
  - Off label use [Recovered/Resolved]
  - Therapeutic product effect decreased [Not Recovered/Not Resolved]

NARRATIVE: CASE EVENT DATE: 20191101
